FAERS Safety Report 15903558 (Version 3)
Quarter: 2019Q2

REPORT INFORMATION
  Report Type: Spontaneous
  Country: US (occurrence: US)
  Receive Date: 20190203
  Receipt Date: 20190405
  Transmission Date: 20190711
  Serious: No
  Sender: FDA-Public Use
  Company Number: US-ASTRAZENECA-2019SE13293

PATIENT
  Sex: Female
  Weight: 44.9 kg

DRUGS (1)
  1. TUDORZA PRESSAIR [Suspect]
     Active Substance: ACLIDINIUM BROMIDE
     Route: 055

REACTIONS (10)
  - Device malfunction [Unknown]
  - Body height decreased [Unknown]
  - Memory impairment [Unknown]
  - Malaise [Unknown]
  - Intentional device misuse [Unknown]
  - Device issue [Unknown]
  - Decreased appetite [Unknown]
  - Arthralgia [Unknown]
  - Weight decreased [Unknown]
  - Feeling abnormal [Unknown]
